FAERS Safety Report 11825691 (Version 1)
Quarter: 2015Q4

REPORT INFORMATION
  Report Type: Spontaneous
  Country: US (occurrence: US)
  Receive Date: 20151211
  Receipt Date: 20151211
  Transmission Date: 20160305
  Serious: No
  Sender: FDA-Public Use
  Company Number: US-JNJFOC-20150800376

PATIENT
  Sex: Female

DRUGS (26)
  1. IMBRUVICA [Suspect]
     Active Substance: IBRUTINIB
     Indication: CHRONIC LYMPHOCYTIC LEUKAEMIA
     Route: 048
  2. IMBRUVICA [Suspect]
     Active Substance: IBRUTINIB
     Indication: CHRONIC LYMPHOCYTIC LEUKAEMIA
     Route: 048
  3. IMBRUVICA [Suspect]
     Active Substance: IBRUTINIB
     Indication: POLYCYTHAEMIA VERA
     Route: 048
     Dates: start: 20150617, end: 20150818
  4. SPIRONOLACTONE. [Concomitant]
     Active Substance: SPIRONOLACTONE
  5. HYDROCODONE [Concomitant]
     Active Substance: HYDROCODONE
     Indication: PAIN
     Route: 048
  6. HYDROXYUREA. [Concomitant]
     Active Substance: HYDROXYUREA
     Indication: POLYCYTHAEMIA VERA
     Route: 048
  7. GEMFIBROZIL. [Concomitant]
     Active Substance: GEMFIBROZIL
     Indication: BLOOD CHOLESTEROL ABNORMAL
     Route: 048
  8. LEVOTHYROXINE. [Concomitant]
     Active Substance: LEVOTHYROXINE
     Indication: THYROID DISORDER
     Route: 048
  9. IMBRUVICA [Suspect]
     Active Substance: IBRUTINIB
     Indication: POLYCYTHAEMIA VERA
     Route: 048
  10. IMBRUVICA [Suspect]
     Active Substance: IBRUTINIB
     Indication: POLYCYTHAEMIA VERA
     Route: 048
  11. IMBRUVICA [Suspect]
     Active Substance: IBRUTINIB
     Indication: WALDENSTROM^S MACROGLOBULINAEMIA
     Route: 048
     Dates: start: 20150617, end: 20150818
  12. FOLIC ACID. [Concomitant]
     Active Substance: FOLIC ACID
     Indication: SUPPLEMENTATION THERAPY
  13. METOPROLOL [Concomitant]
     Active Substance: METOPROLOL
     Indication: THYROID DISORDER
     Route: 048
  14. ALLOPURINOL. [Concomitant]
     Active Substance: ALLOPURINOL
     Indication: GOUT
  15. BIOTIN [Concomitant]
     Active Substance: BIOTIN
     Indication: SUPPLEMENTATION THERAPY
  16. IMBRUVICA [Suspect]
     Active Substance: IBRUTINIB
     Indication: CHRONIC LYMPHOCYTIC LEUKAEMIA
     Route: 048
     Dates: start: 20150617, end: 20150818
  17. HYDROXYUREA. [Concomitant]
     Active Substance: HYDROXYUREA
     Indication: POLYCYTHAEMIA VERA
     Route: 048
  18. MORPHINE [Concomitant]
     Active Substance: MORPHINE
     Indication: PAIN
     Dosage: 15, MG Q PM
     Route: 048
  19. ASPRIN [Concomitant]
     Active Substance: ASPIRIN
     Indication: CARDIAC DISORDER
     Route: 048
  20. VITAMINE D [Concomitant]
     Indication: TRI-IODOTHYRONINE UPTAKE ABNORMAL
     Route: 048
  21. IMBRUVICA [Suspect]
     Active Substance: IBRUTINIB
     Indication: WALDENSTROM^S MACROGLOBULINAEMIA
     Route: 048
  22. IMBRUVICA [Suspect]
     Active Substance: IBRUTINIB
     Indication: WALDENSTROM^S MACROGLOBULINAEMIA
     Route: 048
  23. CALCIUM [Concomitant]
     Active Substance: CALCIUM
     Indication: SUPPLEMENTATION THERAPY
  24. FUROSEMIDE. [Concomitant]
     Active Substance: FUROSEMIDE
     Indication: CARDIAC DISORDER
     Route: 048
  25. ACETAMINOPHEN. [Concomitant]
     Active Substance: ACETAMINOPHEN
  26. ATENOLOL. [Concomitant]
     Active Substance: ATENOLOL
     Indication: BLOOD PRESSURE ABNORMAL

REACTIONS (15)
  - Muscular weakness [Recovering/Resolving]
  - Skin odour abnormal [Recovering/Resolving]
  - Hyperhidrosis [Recovering/Resolving]
  - Fatigue [Recovering/Resolving]
  - Chills [Unknown]
  - Malaise [Recovering/Resolving]
  - Adverse event [Unknown]
  - Nausea [Recovering/Resolving]
  - Abdominal discomfort [Not Recovered/Not Resolved]
  - Pain in extremity [Recovering/Resolving]
  - Pyrexia [Unknown]
  - Decreased appetite [Recovering/Resolving]
  - Pruritus [Unknown]
  - Abdominal distension [Recovering/Resolving]
  - Eructation [Recovering/Resolving]

NARRATIVE: CASE EVENT DATE: 2015
